FAERS Safety Report 12869739 (Version 3)
Quarter: 2018Q1

REPORT INFORMATION
  Report Type: Report from Study
  Country: US (occurrence: US)
  Receive Date: 20161020
  Receipt Date: 20180105
  Transmission Date: 20180508
  Serious: No
  Sender: FDA-Public Use
  Company Number: US-AMGEN-USASL2016115608

PATIENT
  Age: 55 Year
  Sex: Male

DRUGS (2)
  1. REPATHA [Suspect]
     Active Substance: EVOLOCUMAB
     Indication: HYPERCHOLESTEROLAEMIA
     Dosage: 140 MG, Q2WK
     Route: 065
  2. ZETIA [Concomitant]
     Active Substance: EZETIMIBE

REACTIONS (9)
  - Dyspepsia [Recovered/Resolved]
  - Drug intolerance [Recovered/Resolved]
  - Adverse drug reaction [Recovered/Resolved]
  - Muscular weakness [Recovered/Resolved]
  - Gastrooesophageal reflux disease [Recovered/Resolved]
  - Product storage error [Unknown]
  - Fatigue [Recovered/Resolved]
  - Blood cholesterol decreased [Recovered/Resolved]
  - Chest pain [Recovered/Resolved]
